FAERS Safety Report 7640732-5 (Version None)
Quarter: 2011Q3

REPORT INFORMATION
  Report Type: 
  Country: None (occurrence: None)
  Receive Date: 20110722
  Receipt Date: 20110706
  Transmission Date: 20111222
  Serious: Yes (Hospitalization, Other)
  Sender: FDA-Public Use
  Company Number: 2011MA008441

PATIENT
  Age: 54 Year
  Sex: Male

DRUGS (2)
  1. DIAZEPAM [Suspect]
     Indication: DRUG DEPENDENCE
     Dosage: 30 MG
  2. TRICYCLIC ANTIDEPRESSANTS [Concomitant]

REACTIONS (5)
  - CONDITION AGGRAVATED [None]
  - DRUG WITHDRAWAL SYNDROME [None]
  - PAIN THRESHOLD DECREASED [None]
  - INVESTIGATION ABNORMAL [None]
  - DRUG DEPENDENCE [None]
